FAERS Safety Report 4904373-2 (Version None)
Quarter: 2006Q1

REPORT INFORMATION
  Report Type: 
  Country: None (occurrence: None)
  Receive Date: 20060208
  Receipt Date: 20050829
  Transmission Date: 20060701
  Serious: No
  Sender: FDA-Public Use
  Company Number: US-GLAXOSMITHKLINE-A0572198A

PATIENT
  Sex: Male

DRUGS (3)
  1. PAXIL [Suspect]
     Route: 048
  2. XANAX [Concomitant]
  3. FLUOXETINE [Concomitant]

REACTIONS (2)
  - BLOOD PRESSURE INCREASED [None]
  - HEART RATE INCREASED [None]
